FAERS Safety Report 9879891 (Version 2)
Quarter: 2014Q1

REPORT INFORMATION
  Report Type: Spontaneous
  Country: JP (occurrence: JP)
  Receive Date: 20140206
  Receipt Date: 20140228
  Transmission Date: 20141002
  Serious: Yes (Hospitalization)
  Sender: FDA-Public Use
  Company Number: JP-ROCHE-1342510

PATIENT
  Age: 77 Year
  Sex: Female
  Weight: 48 kg

DRUGS (7)
  1. ROCEPHIN [Suspect]
     Indication: WHITE BLOOD CELL COUNT DECREASED
     Route: 041
     Dates: start: 20140123, end: 20140127
  2. BAYASPIRIN [Concomitant]
     Indication: INTRACRANIAL ANEURYSM
     Route: 048
     Dates: start: 20130209
  3. TAKEPRON [Concomitant]
     Indication: INTRACRANIAL ANEURYSM
     Route: 048
     Dates: start: 20130209
  4. AMLODIN [Concomitant]
     Indication: HYPERTENSION
     Route: 048
  5. BLOPRESS [Concomitant]
     Indication: HYPERTENSION
     Route: 048
     Dates: end: 20140129
  6. TRAMCET [Concomitant]
     Indication: SPINAL COMPRESSION FRACTURE
     Route: 048
     Dates: end: 20140130
  7. EVISTA [Concomitant]
     Indication: SPINAL COMPRESSION FRACTURE
     Route: 048

REACTIONS (1)
  - Febrile neutropenia [Recovered/Resolved]
